FAERS Safety Report 8355872-5 (Version None)
Quarter: 2012Q2

REPORT INFORMATION
  Report Type: 
  Country: None (occurrence: None)
  Receive Date: 20120514
  Receipt Date: 20120504
  Transmission Date: 20120825
  Serious: Yes (Other)
  Sender: FDA-Public Use
  Company Number: US-BAYER-2012-031631

PATIENT
  Age: 29 Year
  Sex: Female
  Weight: 59.41 kg

DRUGS (2)
  1. MIRENA [Suspect]
     Indication: CONTRACEPTION
     Dosage: 20 MCG/24HR, CONT
     Route: 015
     Dates: start: 20111128, end: 20120327
  2. MIRENA [Suspect]
     Dosage: 20 MCG/24HR, CONT
     Route: 015
     Dates: start: 20120101

REACTIONS (11)
  - ABDOMINAL PAIN LOWER [None]
  - VOMITING [None]
  - VAGINAL DISCHARGE [None]
  - PYREXIA [None]
  - NAUSEA [None]
  - PAIN [None]
  - ABDOMINAL PAIN [None]
  - CHILLS [None]
  - DEVICE DISLOCATION [None]
  - GENITAL HAEMORRHAGE [None]
  - DYSURIA [None]
